FAERS Safety Report 19615826 (Version 3)
Quarter: 2021Q4

REPORT INFORMATION
  Report Type: Report from Study
  Country: CA (occurrence: CA)
  Receive Date: 20210727
  Receipt Date: 20211108
  Transmission Date: 20220303
  Serious: Yes (Other)
  Sender: FDA-Public Use
  Company Number: CA-OTSUKA-2021_022725

PATIENT
  Sex: Male

DRUGS (1)
  1. CEDAZURIDINE\DECITABINE [Suspect]
     Active Substance: CEDAZURIDINE\DECITABINE
     Indication: Myelodysplastic syndrome
     Dosage: UNK
     Route: 065
     Dates: start: 20210414

REACTIONS (6)
  - Full blood count abnormal [Unknown]
  - Cytopenia [Unknown]
  - Constipation [Unknown]
  - Fatigue [Unknown]
  - Neutrophil count decreased [Unknown]
  - Drug ineffective [Unknown]
